FAERS Safety Report 15947444 (Version 1)
Quarter: 2019Q1

REPORT INFORMATION
  Report Type: Spontaneous
  Country: US (occurrence: US)
  Receive Date: 20190211
  Receipt Date: 20190211
  Transmission Date: 20190417
  Serious: Yes (Other)
  Sender: FDA-Public Use
  Company Number: US-DUCHESNAY INC.-2062488

PATIENT
  Age: 6 Decade
  Sex: Female

DRUGS (1)
  1. OSPHENA [Suspect]
     Active Substance: OSPEMIFENE
     Indication: PRODUCT USED FOR UNKNOWN INDICATION
     Route: 048
     Dates: start: 20180816, end: 20181205

REACTIONS (3)
  - Vaginal discharge [Unknown]
  - Postmenopausal haemorrhage [Unknown]
  - Endometrial cancer [Unknown]

NARRATIVE: CASE EVENT DATE: 201810
